FAERS Safety Report 16152989 (Version 1)
Quarter: 2019Q2

REPORT INFORMATION
  Report Type: Spontaneous
  Country: US (occurrence: US)
  Receive Date: 20190403
  Receipt Date: 20190403
  Transmission Date: 20190711
  Serious: No
  Sender: FDA-Public Use
  Company Number: US-CIPLA LTD.-2019US01393

PATIENT

DRUGS (1)
  1. TESTOSTERONE. [Suspect]
     Active Substance: TESTOSTERONE
     Indication: PRODUCT USED FOR UNKNOWN INDICATION
     Dosage: 1 MILLILITER, EVERY WEEK FOR MULTIPLE TIMES
     Route: 030

REACTIONS (1)
  - Product administration error [Unknown]
